FAERS Safety Report 6737788-0 (Version None)
Quarter: 2010Q2

REPORT INFORMATION
  Report Type: 
  Country: None (occurrence: None)
  Receive Date: 20100524
  Receipt Date: 20100512
  Transmission Date: 20101027
  Serious: Yes (Other)
  Sender: FDA-Public Use
  Company Number: HR-WYE-H13861710

PATIENT
  Age: 60 Year
  Sex: Female
  Weight: 75 kg

DRUGS (6)
  1. CONTROLOC [Suspect]
     Indication: GASTROOESOPHAGEAL REFLUX DISEASE
     Route: 048
     Dates: start: 20070101, end: 20091101
  2. CONTROLOC [Interacting]
     Route: 048
     Dates: start: 20091101
  3. CONTROLOC [Interacting]
     Route: 048
     Dates: start: 20100428
  4. ACETYLSALICYLIC ACID [Concomitant]
     Dosage: UNKNOWN
  5. RESOCHIN [Concomitant]
     Dosage: UNKNOWN
  6. LEVOTHYROXINE SODIUM [Interacting]
     Indication: HYPOTHYROIDISM
     Dosage: UNKNOWN

REACTIONS (2)
  - DRUG INTERACTION [None]
  - HYPOTHYROIDISM [None]
